FAERS Safety Report 15646766 (Version 2)
Quarter: 2019Q1

REPORT INFORMATION
  Report Type: Spontaneous
  Country: JP (occurrence: JP)
  Receive Date: 20181122
  Receipt Date: 20190320
  Transmission Date: 20190417
  Serious: Yes (Hospitalization, Other)
  Sender: FDA-Public Use
  Company Number: JP-AMGEN-JPNSP2018165702

PATIENT
  Age: 71 Year
  Sex: Male

DRUGS (16)
  1. G-LASTA [Suspect]
     Active Substance: PEGFILGRASTIM
     Dosage: 3.6 MG, UNK
     Route: 058
     Dates: start: 20180427
  2. HUMULIN R [Concomitant]
     Active Substance: INSULIN HUMAN
     Indication: DIABETES MELLITUS MANAGEMENT
     Dosage: UNK, QID
     Route: 058
     Dates: start: 20180327, end: 20180330
  3. ETOPOSIDE. [Concomitant]
     Active Substance: ETOPOSIDE
     Dosage: 170 MG, QD
     Route: 041
     Dates: start: 20180424, end: 20180426
  4. CISPLATIN. [Concomitant]
     Active Substance: CISPLATIN
     Indication: SMALL CELL LUNG CANCER
     Dosage: UNK
     Route: 041
  5. ALOXI [Concomitant]
     Active Substance: PALONOSETRON HYDROCHLORIDE
     Indication: SMALL CELL LUNG CANCER
     Dosage: 50 ML, QD
     Route: 041
  6. DEXART [Suspect]
     Active Substance: DEXAMETHASONE SODIUM PHOSPHATE
     Indication: SMALL CELL LUNG CANCER
     Dosage: 2-3 DF
     Route: 041
     Dates: start: 20180327, end: 20180329
  7. ETOPOSIDE. [Concomitant]
     Active Substance: ETOPOSIDE
     Indication: SMALL CELL LUNG CANCER
     Dosage: UNK
     Route: 041
  8. ETOPOSIDE. [Concomitant]
     Active Substance: ETOPOSIDE
     Dosage: UNK
     Route: 041
  9. CISPLATIN. [Concomitant]
     Active Substance: CISPLATIN
     Dosage: 140 MG
     Route: 041
     Dates: start: 20180327, end: 20180327
  10. SOLDEM 1 [Concomitant]
     Active Substance: DEXTROSE\SODIUM CHLORIDE\SODIUM LACTATE
     Indication: SMALL CELL LUNG CANCER
     Dosage: 500 ML, QID
     Route: 041
     Dates: start: 20180327
  11. G-LASTA [Suspect]
     Active Substance: PEGFILGRASTIM
     Indication: COLONY STIMULATING FACTOR THERAPY
     Dosage: 3.6 MG, UNK
     Route: 058
     Dates: start: 20180330
  12. LASIX M [Suspect]
     Active Substance: FUROSEMIDE
     Indication: SMALL CELL LUNG CANCER
     Dosage: 20 MG, QD
     Route: 042
     Dates: start: 20180327
  13. CISPLATIN. [Concomitant]
     Active Substance: CISPLATIN
     Dosage: 140 MG
     Route: 041
     Dates: start: 20180424, end: 20180424
  14. ISOTONIC SODIUM CHLORIDE SOLUTION [Concomitant]
     Active Substance: SODIUM CHLORIDE
     Indication: SMALL CELL LUNG CANCER
     Dosage: 100 ML, QD
     Route: 041
     Dates: start: 20180327
  15. MAGNESIUM SULFATE. [Concomitant]
     Active Substance: MAGNESIUM SULFATE
     Indication: SMALL CELL LUNG CANCER
     Dosage: 10 ML, QD
     Route: 041
     Dates: start: 20180327
  16. ETOPOSIDE. [Concomitant]
     Active Substance: ETOPOSIDE
     Dosage: 170 MG, QD
     Route: 041
     Dates: start: 20180327, end: 20180329

REACTIONS (2)
  - Syncope [Recovered/Resolved]
  - Blood pressure decreased [Recovered/Resolved]

NARRATIVE: CASE EVENT DATE: 20180331
